FAERS Safety Report 8195601-1 (Version None)
Quarter: 2012Q1

REPORT INFORMATION
  Report Type: 
  Country: None (occurrence: None)
  Receive Date: 20120308
  Receipt Date: 20120223
  Transmission Date: 20120608
  Serious: Yes (Other)
  Sender: FDA-Public Use
  Company Number: CHPA2012US003638

PATIENT
  Sex: Female

DRUGS (3)
  1. EXCEDRIN EXTRA STRENGTH TABLETS [Suspect]
     Dosage: 6-8 DF, UNK
     Route: 048
  2. NEOSPORIN (NEOMYCIN SULFATE/POLYMYXIN B SULFATE) [Concomitant]
     Indication: MIGRAINE
     Dosage: UNK
  3. EXCEDRIN EXTRA STRENGTH TABLETS [Suspect]
     Indication: MIGRAINE
     Dosage: 2 DF, PRN
     Route: 048
     Dates: end: 20120101

REACTIONS (2)
  - THERAPEUTIC RESPONSE UNEXPECTED [None]
  - HIATUS HERNIA [None]
